FAERS Safety Report 7561913-5 (Version None)
Quarter: 2011Q2

REPORT INFORMATION
  Report Type: 
  Country: None (occurrence: None)
  Receive Date: 20110621
  Receipt Date: 20110617
  Transmission Date: 20111010
  Serious: Yes (Death, Life-Threatening, Hospitalization)
  Sender: FDA-Public Use
  Company Number: PHHY2010JP02169

PATIENT
  Sex: Male
  Weight: 40 kg

DRUGS (6)
  1. EXJADE [Suspect]
     Dosage: 750 MG, DAILY
     Route: 048
     Dates: start: 20090826
  2. RED BLOOD CELLS, LEUCOCYTE DEPLETED [Concomitant]
     Dosage: UNITS EVERY 1 TO 2 WEEKS
     Dates: start: 20090417, end: 20090925
  3. EXJADE [Suspect]
     Dosage: 1000 MG/DAY
     Dates: start: 20091105, end: 20091210
  4. EXJADE [Suspect]
     Indication: IRON OVERLOAD
     Dosage: 500 MG DAILY
     Route: 048
     Dates: start: 20090715, end: 20090825
  5. EXJADE [Suspect]
     Indication: MYELOFIBROSIS
     Dosage: 1000 MG DAILY
     Route: 048
     Dates: start: 20090417, end: 20090714
  6. PRIMOBOLAN-DEPOT INJ [Concomitant]
     Indication: MYELOFIBROSIS
     Dosage: 20 MG, UNK
     Route: 048
     Dates: start: 20080918, end: 20090804

REACTIONS (9)
  - SUDDEN DEATH [None]
  - RENAL FAILURE [None]
  - ANAEMIA [None]
  - GASTROINTESTINAL HAEMORRHAGE [None]
  - DIARRHOEA [None]
  - DEHYDRATION [None]
  - PLATELET COUNT DECREASED [None]
  - C-REACTIVE PROTEIN INCREASED [None]
  - INFECTION [None]
